FAERS Safety Report 15196877 (Version 1)
Quarter: 2018Q3

REPORT INFORMATION
  Report Type: Report from Study
  Country: US (occurrence: US)
  Receive Date: 20180725
  Receipt Date: 20180725
  Transmission Date: 20181010
  Serious: Yes (Hospitalization)
  Sender: FDA-Public Use
  Company Number: US-ASTRAZENECA-2018SE32085

PATIENT
  Sex: Female
  Weight: 68 kg

DRUGS (10)
  1. TAGRISSO [Suspect]
     Active Substance: OSIMERTINIB
     Indication: NON-SMALL CELL LUNG CANCER
     Route: 048
     Dates: start: 20180209
  2. TYLENOL [Concomitant]
     Active Substance: ACETAMINOPHEN
  3. VITAMIN D3 [Concomitant]
     Active Substance: CHOLECALCIFEROL
  4. COLACE [Concomitant]
     Active Substance: DOCUSATE SODIUM
  5. AFRIN [Concomitant]
     Active Substance: OXYMETAZOLINE
  6. LEVOTHYROXINE. [Concomitant]
     Active Substance: LEVOTHYROXINE
     Dosage: REDUCED TO 25 %
  7. VITAMIN C [Concomitant]
     Active Substance: ASCORBIC ACID
  8. BENADRYL ALLERGY [Concomitant]
     Active Substance: DIPHENHYDRAMINE HYDROCHLORIDE
  9. LIDOCAINE?HYDROCORTISONE [Concomitant]
  10. LEVOTHYROXINE. [Concomitant]
     Active Substance: LEVOTHYROXINE
     Dosage: FULL DOSE

REACTIONS (10)
  - Atrial fibrillation [Recovered/Resolved]
  - Asthenia [Unknown]
  - Muscle spasms [Unknown]
  - Constipation [Unknown]
  - Diarrhoea [Unknown]
  - Hyperthyroidism [Unknown]
  - Dry skin [Unknown]
  - Rash [Unknown]
  - Weight decreased [Unknown]
  - Influenza [Unknown]
